FAERS Safety Report 8215850 (Version 7)
Quarter: 2014Q1

REPORT INFORMATION
  Report Type: Report from Study
  Country: BR (occurrence: BR)
  Receive Date: 20111031
  Receipt Date: 20140304
  Transmission Date: 20141002
  Serious: Yes (Life-Threatening, Hospitalization, Other)
  Sender: FDA-Public Use
  Company Number: BR-ROCHE-594610

PATIENT
  Age: 64 Year
  Sex: Female
  Weight: 54 kg

DRUGS (17)
  1. MABTHERA [Suspect]
     Indication: RHEUMATOID ARTHRITIS
     Dosage: FORM: INFUSION, DOSAGE: 2 INFUSIONS
     Route: 042
     Dates: start: 2008, end: 20081023
  2. MABTHERA [Suspect]
     Dosage: FREQ: 2 INFUSIONS
     Route: 042
     Dates: start: 200906, end: 200907
  3. MABTHERA [Suspect]
     Dosage: FREQUENCY: TWO INFUSIONS/ EVERY 15 DAYS
     Route: 042
     Dates: start: 20100617, end: 20100701
  4. MABTHERA [Suspect]
     Route: 042
  5. MABTHERA [Suspect]
     Route: 042
  6. MABTHERA [Suspect]
     Route: 042
     Dates: start: 200906, end: 201105
  7. ORENCIA [Suspect]
     Indication: RHEUMATOID ARTHRITIS
     Route: 042
     Dates: end: 20130909
  8. PREDSIM [Concomitant]
     Indication: ARTHRALGIA
     Route: 048
  9. PREDNISONE [Concomitant]
     Route: 065
  10. NAPROXEN [Concomitant]
     Route: 065
  11. ENALAPRIL [Concomitant]
     Route: 065
  12. GLIMEPIRIDE [Concomitant]
     Route: 065
  13. MACRODANTINA [Concomitant]
     Route: 065
  14. PURAN T4 [Concomitant]
     Route: 065
  15. METFORMIN [Concomitant]
     Route: 065
  16. METHYLPREDNISOLONE [Concomitant]
     Route: 065
     Dates: start: 20110519, end: 20110519
  17. GLIFAGE [Concomitant]
     Route: 065

REACTIONS (56)
  - Diabetes mellitus [Recovering/Resolving]
  - Pneumonia [Recovering/Resolving]
  - Rheumatoid arthritis [Recovering/Resolving]
  - Vascular calcification [Not Recovered/Not Resolved]
  - Bacteraemia [Recovering/Resolving]
  - Blood glucose increased [Unknown]
  - Aortic calcification [Not Recovered/Not Resolved]
  - Dyspnoea [Not Recovered/Not Resolved]
  - Pneumonia [Recovered/Resolved]
  - Headache [Recovered/Resolved]
  - Feeling hot [Unknown]
  - Pruritus [Not Recovered/Not Resolved]
  - Psoriasis [Not Recovered/Not Resolved]
  - Abdominal distension [Not Recovered/Not Resolved]
  - Pain in extremity [Not Recovered/Not Resolved]
  - Local swelling [Not Recovered/Not Resolved]
  - Muscle spasms [Not Recovered/Not Resolved]
  - Diverticulitis [Not Recovered/Not Resolved]
  - Hypertension [Not Recovered/Not Resolved]
  - Malaise [Recovered/Resolved]
  - Dizziness [Recovered/Resolved]
  - Abasia [Recovering/Resolving]
  - Hot flush [Recovered/Resolved]
  - Vascular calcification [Not Recovered/Not Resolved]
  - Renal pain [Not Recovered/Not Resolved]
  - Hypertension [Recovering/Resolving]
  - Thirst [Recovered/Resolved]
  - Influenza [Recovered/Resolved]
  - Drug ineffective [Unknown]
  - Neck pain [Recovering/Resolving]
  - Bone pain [Not Recovered/Not Resolved]
  - Pain in extremity [Not Recovered/Not Resolved]
  - Hypoaesthesia [Not Recovered/Not Resolved]
  - Skin fissures [Recovered/Resolved]
  - Skin exfoliation [Not Recovered/Not Resolved]
  - Dry mouth [Recovered/Resolved]
  - Diabetes mellitus [Recovering/Resolving]
  - Skin papilloma [Recovered/Resolved]
  - Immunodeficiency [Recovered/Resolved]
  - Pruritus [Recovered/Resolved]
  - Mass [Recovered/Resolved]
  - Dry skin [Recovered/Resolved]
  - Hyperaesthesia [Not Recovered/Not Resolved]
  - Skin hypertrophy [Recovered/Resolved]
  - Skin fissures [Unknown]
  - Pain in extremity [Not Recovered/Not Resolved]
  - Headache [Unknown]
  - Malaise [Unknown]
  - Hypertension [Unknown]
  - Blood glucose decreased [Unknown]
  - Mass [Recovered/Resolved]
  - Drug ineffective [Unknown]
  - Pulmonary mass [Not Recovered/Not Resolved]
  - Arteriosclerosis [Unknown]
  - Blood glucose increased [Recovered/Resolved]
  - Immunodeficiency [Recovered/Resolved]
